FAERS Safety Report 5113915-6 (Version None)
Quarter: 2006Q3

REPORT INFORMATION
  Report Type: 
  Country: None (occurrence: None)
  Receive Date: 20060922
  Receipt Date: 20060922
  Transmission Date: 20061208
  Serious: Yes (Hospitalization)
  Sender: FDA-Public Use
  Company Number: None

PATIENT
  Sex: Female
  Weight: 70.4 kg

DRUGS (1)
  1. ETOPOSIDE [Suspect]
     Dosage: 154 MG
     Dates: end: 20060921

REACTIONS (1)
  - DIARRHOEA [None]
